FAERS Safety Report 14829898 (Version 1)
Quarter: 2018Q2

REPORT INFORMATION
  Report Type: Spontaneous
  Country: FR (occurrence: FR)
  Receive Date: 20180430
  Receipt Date: 20180430
  Transmission Date: 20180711
  Serious: Yes (Hospitalization)
  Sender: FDA-Public Use
  Company Number: FR-PFIZER INC-2018171144

PATIENT
  Age: 68 Year
  Sex: Female
  Weight: 66 kg

DRUGS (10)
  1. GAVISCON /00902401/ [Concomitant]
     Dosage: 3 DF, AS NEEDED (1DF IN THE MORNING, 1DF AT NOON, 1DF IN THE EVENING)
  2. KARDEGIC [Concomitant]
     Active Substance: ASPIRIN DL-LYSINE
     Dosage: UNK, ONCE A DAY (ONCE IN THE MORNING)
  3. TARDYFERON [Concomitant]
     Active Substance: FERROUS SULFATE
     Dosage: UNK, ONCE A DAY (ONCE AT NOON)
  4. DAFALGAN [Concomitant]
     Active Substance: ACETAMINOPHEN
     Indication: PAIN
     Dosage: UNK, ONCE A DAY IF WITH PAIN (AS NEEDED)
  5. OXALIPLATIN. [Suspect]
     Active Substance: OXALIPLATIN
     Indication: NEOPLASM MALIGNANT
     Dosage: UNK
     Route: 042
     Dates: start: 20180306, end: 20180306
  6. XELODA [Suspect]
     Active Substance: CAPECITABINE
     Indication: NEOPLASM MALIGNANT
     Dosage: 2 G, ONCE A DAY
     Route: 048
     Dates: start: 20180306, end: 20180308
  7. SIMVASTATIN. [Concomitant]
     Active Substance: SIMVASTATIN
     Dosage: UNK, ONCE A DAY (ONCE IN THE MORNING)
  8. CETIRIZINE [Concomitant]
     Active Substance: CETIRIZINE HYDROCHLORIDE
     Dosage: UNK, ONCE A DAY IF NEEDED
  9. EPIRUBICIN HCL [Suspect]
     Active Substance: EPIRUBICIN HYDROCHLORIDE
     Indication: NEOPLASM MALIGNANT
     Dosage: UNK
     Route: 042
     Dates: start: 20180306, end: 20180306
  10. ESOMEPRAZOLE [Concomitant]
     Active Substance: ESOMEPRAZOLE
     Dosage: UNK, ONCE A DAY (ONCE IN THE MORNING)

REACTIONS (2)
  - Hyponatraemia [Recovered/Resolved]
  - Seizure [Recovered/Resolved]

NARRATIVE: CASE EVENT DATE: 20180308
